FAERS Safety Report 8198347-9 (Version None)
Quarter: 2012Q1

REPORT INFORMATION
  Report Type: 
  Country: None (occurrence: None)
  Receive Date: 20120309
  Receipt Date: 20120103
  Transmission Date: 20120608
  Serious: No
  Sender: FDA-Public Use
  Company Number: US-AMGEN-USASP2012000076

PATIENT
  Age: 89 Year
  Sex: Female

DRUGS (10)
  1. VITAMIN D [Concomitant]
     Dosage: UNK
  2. NORVASC [Concomitant]
     Dosage: UNK
  3. OSTEO BI-FLEX [Concomitant]
     Dosage: UNK
  4. NEXIUM [Concomitant]
  5. COUMADIN [Concomitant]
     Dosage: 1 MG, QD
  6. NEXIUM [Concomitant]
     Dosage: UNK UNK, QD
  7. PROLIA [Suspect]
     Indication: OSTEOPOROSIS POSTMENOPAUSAL
     Dosage: 60 MG, Q6MO
     Dates: start: 20110801
  8. MONOPRIL [Concomitant]
     Dosage: UNK
  9. ALLEGRA [Concomitant]
  10. ALLEGRA [Concomitant]
     Dosage: UNK UNK, QD

REACTIONS (4)
  - TOOTH DISORDER [None]
  - TOOTH DISCOLOURATION [None]
  - TOOTHACHE [None]
  - ALOPECIA [None]
